FAERS Safety Report 9885790 (Version 3)
Quarter: 2014Q2

REPORT INFORMATION
  Report Type: Spontaneous
  Country: JP (occurrence: JP)
  Receive Date: 20140210
  Receipt Date: 20140423
  Transmission Date: 20141212
  Serious: Yes (Other)
  Sender: FDA-Public Use
  Company Number: JP-SA-2013SA136185

PATIENT
  Age: 36 Year
  Sex: Male
  Weight: 71 kg

DRUGS (11)
  1. ELPLAT [Suspect]
     Indication: RECTAL CANCER
     Route: 041
     Dates: start: 20101012, end: 20101012
  2. ELPLAT [Suspect]
     Indication: RECTAL CANCER
     Route: 041
     Dates: start: 20100921, end: 20100921
  3. ELPLAT [Suspect]
     Indication: RECTAL CANCER
     Route: 041
     Dates: start: 20100831, end: 20100831
  4. ELPLAT [Suspect]
     Indication: RECTAL CANCER
     Route: 041
     Dates: start: 20100810, end: 20100810
  5. ELPLAT [Suspect]
     Indication: RECTAL CANCER
     Route: 041
     Dates: start: 20100713, end: 20100713
  6. ELPLAT [Suspect]
     Indication: RECTAL CANCER
     Route: 041
     Dates: start: 20100622, end: 20100622
  7. ELPLAT [Suspect]
     Indication: RECTAL CANCER
     Route: 041
     Dates: start: 20100601, end: 20100601
  8. ELPLAT [Suspect]
     Indication: RECTAL CANCER
     Route: 041
     Dates: start: 20100511, end: 20100511
  9. XELODA [Concomitant]
     Dates: start: 20100420, end: 20110322
  10. AVASTIN [Concomitant]
     Dates: start: 20100420, end: 20110308
  11. ELPLAT [Suspect]
     Indication: RECTAL CANCER
     Route: 041
     Dates: start: 20100420, end: 20100420

REACTIONS (6)
  - Varices oesophageal [Recovered/Resolved]
  - Neuropathy peripheral [Unknown]
  - Ascites [Unknown]
  - Venoocclusive liver disease [Unknown]
  - Splenomegaly [Unknown]
  - Platelet count decreased [Unknown]
